FAERS Safety Report 15885661 (Version 1)
Quarter: 2019Q1

REPORT INFORMATION
  Report Type: Report from Study
  Country: US (occurrence: US)
  Receive Date: 20190129
  Receipt Date: 20190129
  Transmission Date: 20190417
  Serious: Yes (Death)
  Sender: FDA-Public Use
  Company Number: US-BAYER-2019-021083

PATIENT
  Age: 65 Year
  Sex: Male

DRUGS (1)
  1. ADEMPAS [Suspect]
     Active Substance: RIOCIGUAT
     Indication: PULMONARY ARTERIAL HYPERTENSION
     Dosage: 0.5 MG
     Route: 048
     Dates: start: 201709

REACTIONS (2)
  - Product dose omission [None]
  - Death [Fatal]

NARRATIVE: CASE EVENT DATE: 20190125
